FAERS Safety Report 7376028-9 (Version None)
Quarter: 2011Q1

REPORT INFORMATION
  Report Type: 
  Country: None (occurrence: None)
  Receive Date: 20110317
  Receipt Date: 20110309
  Transmission Date: 20110831
  Serious: Yes (Hospitalization, Other)
  Sender: FDA-Public Use
  Company Number: 20109779

PATIENT
  Age: 59 Year
  Sex: Male

DRUGS (4)
  1. CLEXANE [Concomitant]
  2. LIORESAL [Suspect]
     Indication: MUSCLE SPASTICITY
     Dosage: 100 MCG/150 MCG MCG DAILY, INTRATHECAL
     Route: 037
  3. ENOXAPARIN SODIUM PROPHYLAXIS OF THROMBOSIS [Concomitant]
  4. UNACID [Concomitant]

REACTIONS (5)
  - IMPLANT SITE EFFUSION [None]
  - C-REACTIVE PROTEIN INCREASED [None]
  - WOUND DEHISCENCE [None]
  - INTRACRANIAL HYPOTENSION [None]
  - HYPOKALAEMIA [None]
